FAERS Safety Report 10829209 (Version 1)
Quarter: 2015Q1

REPORT INFORMATION
  Report Type: Report from Study
  Country: US (occurrence: US)
  Receive Date: 20150219
  Receipt Date: 20150219
  Transmission Date: 20150721
  Serious: No
  Sender: FDA-Public Use
  Company Number: US-ABBVIE-14P-163-1191340-00

PATIENT
  Age: 26 Year
  Sex: Female

DRUGS (6)
  1. EQUALING [Concomitant]
     Indication: COLITIS ULCERATIVE
  2. APRISO [Concomitant]
     Active Substance: MESALAMINE
     Indication: PRODUCT USED FOR UNKNOWN INDICATION
  3. AZATHIOPRINE. [Concomitant]
     Active Substance: AZATHIOPRINE
     Indication: COLITIS ULCERATIVE
  4. HUMIRA [Suspect]
     Active Substance: ADALIMUMAB
     Indication: COLITIS ULCERATIVE
     Dates: start: 20131214, end: 20131214
  5. HUMIRA [Suspect]
     Active Substance: ADALIMUMAB
     Dates: start: 20140111
  6. HUMIRA [Suspect]
     Active Substance: ADALIMUMAB
     Dates: start: 20131228, end: 20131228

REACTIONS (3)
  - Injection site erythema [Recovered/Resolved]
  - Injection site swelling [Recovered/Resolved]
  - Injection site pain [Recovered/Resolved]

NARRATIVE: CASE EVENT DATE: 20131214
